FAERS Safety Report 5377642-2 (Version None)
Quarter: 2007Q3

REPORT INFORMATION
  Report Type: 
  Country: None (occurrence: None)
  Receive Date: 20070703
  Receipt Date: 20070627
  Transmission Date: 20080115
  Serious: Yes (Hospitalization)
  Sender: FDA-Public Use
  Company Number: IT-PFIZER INC-2007030033

PATIENT
  Sex: Female

DRUGS (8)
  1. CABASER [Suspect]
     Indication: PARKINSON'S DISEASE
     Route: 048
     Dates: start: 20040101, end: 20070331
  2. DOMPERIDONE [Concomitant]
  3. ALLOPURINOL [Concomitant]
  4. FUROSEMIDE [Concomitant]
  5. CARDIOASPIRINA [Concomitant]
     Route: 048
  6. FLUSS [Concomitant]
     Route: 048
  7. SEREVENT [Concomitant]
  8. NITRODERM [Concomitant]
     Route: 062

REACTIONS (4)
  - DYSPNOEA [None]
  - MITRAL VALVE DISEASE [None]
  - PLEURAL EFFUSION [None]
  - PRODUCTIVE COUGH [None]
